FAERS Safety Report 5693906-7 (Version None)
Quarter: 2008Q2

REPORT INFORMATION
  Report Type: 
  Country: None (occurrence: None)
  Receive Date: 20080403
  Receipt Date: 20080324
  Transmission Date: 20081010
  Serious: Yes (Disabling, Other)
  Sender: FDA-Public Use
  Company Number: JP-PFIZER INC-2008021200

PATIENT
  Sex: Female
  Weight: 46 kg

DRUGS (12)
  1. CAMPTO [Suspect]
     Indication: NON-SMALL CELL LUNG CANCER
     Route: 042
     Dates: start: 20071010, end: 20071017
  2. CISPLATIN [Suspect]
     Indication: NON-SMALL CELL LUNG CANCER
     Route: 042
     Dates: start: 20071010, end: 20071010
  3. DESYREL [Suspect]
     Indication: ANTIDEPRESSANT THERAPY
     Dosage: DAILY DOSE:50MG
     Route: 048
  4. TRAVELMIN [Suspect]
     Indication: DIZZINESS
     Dosage: TEXT:1 DF
     Route: 048
  5. CEPHADOL [Suspect]
     Indication: DIZZINESS
     Route: 048
  6. OXYCONTIN [Concomitant]
     Indication: CANCER PAIN
     Route: 048
     Dates: start: 20071005, end: 20071108
  7. MAGNESIUM OXIDE [Concomitant]
     Indication: LAXATIVE SUPPORTIVE CARE
     Route: 048
  8. NORVASC [Concomitant]
     Indication: HYPERTENSION
     Route: 048
  9. BLOPRESS [Concomitant]
     Indication: HYPERTENSION
     Route: 048
  10. LIPITOR [Concomitant]
     Indication: HYPERLIPIDAEMIA
     Route: 048
  11. CYANOCOBALAMIN [Concomitant]
     Indication: NEUROPATHY PERIPHERAL
     Route: 048
  12. WARFARIN SODIUM [Concomitant]
     Indication: ANTICOAGULANT THERAPY
     Route: 048

REACTIONS (5)
  - DYSURIA [None]
  - HAEMOGLOBIN DECREASED [None]
  - LEUKOPENIA [None]
  - NEUTROPENIA [None]
  - URINARY RETENTION [None]
